FAERS Safety Report 9402810 (Version 3)
Quarter: 2014Q4

REPORT INFORMATION
  Report Type: Spontaneous
  Country: US (occurrence: US)
  Receive Date: 20130716
  Receipt Date: 20141029
  Transmission Date: 20150529
  Serious: No
  Sender: FDA-Public Use
  Company Number: US-PFIZER INC-2013207825

PATIENT
  Age: 35 Year
  Sex: Female

DRUGS (9)
  1. DARVOCET [Suspect]
     Active Substance: ACETAMINOPHEN\PROPOXYPHENE HYDROCHLORIDE
     Dosage: UNK
  2. ROCEPHIN [Suspect]
     Active Substance: CEFTRIAXONE SODIUM
     Dosage: UNK
  3. METHADONE [Suspect]
     Active Substance: METHADONE HYDROCHLORIDE
     Dosage: UNK
  4. TESSALON [Suspect]
     Active Substance: BENZONATATE
     Dosage: UNK
  5. ZOFRAN [Suspect]
     Active Substance: ONDANSETRON HYDROCHLORIDE
     Dosage: UNK
  6. BIAXIN [Suspect]
     Active Substance: CLARITHROMYCIN
     Dosage: UNK
  7. ZOLOFT [Suspect]
     Active Substance: SERTRALINE HYDROCHLORIDE
     Dosage: UNK
  8. WELLBUTRIN [Suspect]
     Active Substance: BUPROPION HYDROCHLORIDE
     Dosage: UNK
  9. PENLES [Suspect]
     Active Substance: LIDOCAINE
     Dosage: UNK

REACTIONS (1)
  - Drug hypersensitivity [Unknown]
